FAERS Safety Report 10019637 (Version 1)
Quarter: 2014Q1

REPORT INFORMATION
  Report Type: Spontaneous
  Country: DE (occurrence: DE)
  Receive Date: 20140318
  Receipt Date: 20140318
  Transmission Date: 20141002
  Serious: Yes (Other)
  Sender: FDA-Public Use
  Company Number: DE-ACTAVIS-2014-04848

PATIENT
  Age: 57 Year
  Sex: Female
  Weight: 87 kg

DRUGS (5)
  1. PACLITAXEL (UNKNOWN) [Suspect]
     Indication: BREAST CANCER FEMALE
     Dosage: 157 MG, UNK
     Route: 042
     Dates: start: 20131113, end: 20140212
  2. AVASTIN /00848101/ [Suspect]
     Indication: BREAST CANCER FEMALE
     Dosage: 1305 MG, UNK
     Route: 042
     Dates: start: 20131113
  3. RANITIC [Concomitant]
     Indication: PROPHYLAXIS OF NAUSEA AND VOMITING
     Dosage: 50 MG, UNK
     Route: 042
     Dates: start: 20131113, end: 20140212
  4. TAVEGIL                            /00137201/ [Concomitant]
     Indication: PROPHYLAXIS OF NAUSEA AND VOMITING
     Dosage: 2 MG, UNK
     Route: 042
     Dates: start: 20131113, end: 20140212
  5. GRANISETRON [Concomitant]
     Indication: PROPHYLAXIS OF NAUSEA AND VOMITING
     Dosage: 1 MG, UNK
     Route: 042
     Dates: start: 20131113, end: 20140212

REACTIONS (2)
  - Pulmonary embolism [Recovering/Resolving]
  - Deep vein thrombosis [Recovering/Resolving]
